FAERS Safety Report 7678397-9 (Version None)
Quarter: 2011Q3

REPORT INFORMATION
  Report Type: 
  Country: None (occurrence: None)
  Receive Date: 20110811
  Receipt Date: 20110808
  Transmission Date: 20111222
  Serious: Yes (Other)
  Sender: FDA-Public Use
  Company Number: US-ABBOTT-11P-163-0844962-00

PATIENT
  Sex: Female
  Weight: 81.72 kg

DRUGS (3)
  1. SYNTHROID [Suspect]
     Indication: AUTOIMMUNE THYROIDITIS
     Dates: start: 20110501, end: 20110801
  2. SYNTHROID [Suspect]
     Dates: end: 20110501
  3. SYNTHROID [Suspect]
     Dates: start: 20110801

REACTIONS (7)
  - THROAT TIGHTNESS [None]
  - DYSPNOEA [None]
  - BLOOD THYROID STIMULATING HORMONE INCREASED [None]
  - SWELLING FACE [None]
  - ANAPHYLACTIC REACTION [None]
  - REACTION TO AZO-DYES [None]
  - SWOLLEN TONGUE [None]
